FAERS Safety Report 8910951 (Version 1)
Quarter: 2012Q4

REPORT INFORMATION
  Report Type: 
  Country: ES (occurrence: ES)
  Receive Date: 20121116
  Receipt Date: 20121116
  Transmission Date: 20130627
  Serious: Yes (Death)
  Sender: FDA-Public Use
  Company Number: ES-SANOFI-AVENTIS-2012SA082354

PATIENT
  Age: 83 Year
  Sex: Female

DRUGS (6)
  1. SEGURIL [Suspect]
     Indication: CARDIAC FAILURE
     Route: 048
     Dates: start: 20111227, end: 20120521
  2. ESCITALOPRAM OXALATE [Interacting]
     Indication: DEPRESSION
     Route: 048
     Dates: start: 20111227, end: 20120521
  3. SPIRIVA [Concomitant]
     Indication: COPD
     Route: 055
     Dates: start: 20111227, end: 20120521
  4. COVERSYL /FRA/ [Concomitant]
     Indication: HYPERTENSION
     Route: 048
     Dates: start: 20111227, end: 20120521
  5. ATORVASTATIN [Concomitant]
     Indication: DYSLIPIDAEMIA
     Route: 048
     Dates: start: 20111227, end: 20120521
  6. OMEPRAZOLE [Concomitant]
     Indication: PROPHYLAXIS AGAINST GASTROINTESTINAL ULCER
     Route: 048
     Dates: start: 2010, end: 20120521

REACTIONS (2)
  - Inappropriate antidiuretic hormone secretion [Fatal]
  - Drug interaction [Unknown]
